FAERS Safety Report 20879661 (Version 1)
Quarter: 2022Q2

REPORT INFORMATION
  Report Type: Spontaneous
  Country: US (occurrence: US)
  Receive Date: 20220526
  Receipt Date: 20220526
  Transmission Date: 20220721
  Serious: No
  Sender: FDA-Public Use
  Company Number: US-RADIUS HEALTH INC.-2021US004262

PATIENT
  Age: 89 Year
  Sex: Female

DRUGS (1)
  1. TYMLOS [Suspect]
     Active Substance: ABALOPARATIDE
     Indication: Product used for unknown indication
     Dosage: 80 MICROGRAM, QD
     Route: 058
     Dates: start: 20200801, end: 20210930

REACTIONS (3)
  - Blood pressure decreased [Unknown]
  - Bone density decreased [Unknown]
  - Diplopia [Unknown]

NARRATIVE: CASE EVENT DATE: 20200930
